FAERS Safety Report 14250574 (Version 3)
Quarter: 2018Q1

REPORT INFORMATION
  Report Type: Spontaneous
  Country: FR (occurrence: FR)
  Receive Date: 20171205
  Receipt Date: 20180122
  Transmission Date: 20180508
  Serious: Yes (Other)
  Sender: FDA-Public Use
  Company Number: FR-MERCK KGAA-2036642

PATIENT
  Age: 45 Year
  Sex: Male
  Weight: 74 kg

DRUGS (1)
  1. NOVOTHYROX [Suspect]
     Active Substance: LEVOTHYROXINE SODIUM
     Indication: HYPOTHYROIDISM
     Route: 048
     Dates: start: 20170522

REACTIONS (13)
  - Anxiety [Recovering/Resolving]
  - Blood thyroid stimulating hormone [Recovered/Resolved]
  - Paraesthesia [Recovering/Resolving]
  - Stress [Recovering/Resolving]
  - Paranoia [Recovering/Resolving]
  - Hyperhidrosis [Recovering/Resolving]
  - Myalgia [Recovering/Resolving]
  - Emotional disorder [Recovering/Resolving]
  - Chest pain [Recovering/Resolving]
  - Fatigue [Recovering/Resolving]
  - Depressed mood [Recovering/Resolving]
  - Anger [Recovering/Resolving]
  - Phobia [Recovering/Resolving]

NARRATIVE: CASE EVENT DATE: 20170601
